FAERS Safety Report 5407944-2 (Version None)
Quarter: 2007Q3

REPORT INFORMATION
  Report Type: 
  Country: None (occurrence: None)
  Receive Date: 20070803
  Receipt Date: 20070716
  Transmission Date: 20080115
  Serious: Yes (Hospitalization, Other)
  Sender: FDA-Public Use
  Company Number: 2007US-08653

PATIENT
  Age: 15 Year
  Sex: Male

DRUGS (2)
  1. ISOTRETINOIN [Suspect]
     Indication: ACNE CYSTIC
     Dosage: 40 MG, QD, ORAL; 60 MG, QD,
     Route: 048
     Dates: start: 20070406, end: 20070506
  2. ISOTRETINOIN [Suspect]
     Indication: ACNE CYSTIC
     Dosage: 40 MG, QD, ORAL; 60 MG, QD,
     Route: 048
     Dates: start: 20070507, end: 20070521

REACTIONS (2)
  - PNEUMOMEDIASTINUM [None]
  - VIRAL INFECTION [None]
